FAERS Safety Report 7374157-7 (Version None)
Quarter: 2011Q1

REPORT INFORMATION
  Report Type: 
  Country: None (occurrence: None)
  Receive Date: 20110315
  Receipt Date: 20110308
  Transmission Date: 20110831
  Serious: Yes (Death)
  Sender: FDA-Public Use
  Company Number: 2008JP003868

PATIENT
  Age: 53 Year
  Sex: Female

DRUGS (2)
  1. PROGRAF [Suspect]
     Indication: RHEUMATOID ARTHRITIS
     Dosage: 2 MG,
     Dates: start: 20061101
  2. METHROTREXATE (METHOTREXATE) [Concomitant]

REACTIONS (10)
  - PYREXIA [None]
  - FUNGAL INFECTION [None]
  - DIFFUSE LARGE B-CELL LYMPHOMA [None]
  - LYMPHOMA [None]
  - TUBERCULOSIS [None]
  - BLOOD BETA-D-GLUCAN INCREASED [None]
  - MALAISE [None]
  - LUNG NEOPLASM [None]
  - RESPIRATORY FAILURE [None]
  - DISSEMINATED INTRAVASCULAR COAGULATION [None]
